FAERS Safety Report 4557785-3 (Version None)
Quarter: 2005Q1

REPORT INFORMATION
  Report Type: 
  Country: None (occurrence: None)
  Receive Date: 20050118
  Receipt Date: 20050105
  Transmission Date: 20050727
  Serious: Yes (Other)
  Sender: FDA-Public Use
  Company Number: HQWYE395805JAN05

PATIENT
  Sex: Female

DRUGS (2)
  1. PANTOZOL          (PANTOPRAZOLE, INJECTION) [Suspect]
     Indication: GASTRITIS HAEMORRHAGIC
     Dosage: 40 MG 3X PER 1 DAY INTRAVENOUS
     Route: 042
     Dates: start: 20041224
  2. PANTOZOL                   (PANTOPRAZOLE) [Suspect]
     Dosage: 40 MG 1X PER 1 DAY ORAL
     Route: 048
     Dates: start: 20041210, end: 20041223

REACTIONS (4)
  - CONVULSION [None]
  - EPILEPSY [None]
  - LOSS OF CONSCIOUSNESS [None]
  - NERVOUS SYSTEM DISORDER [None]
